FAERS Safety Report 9546530 (Version 2)
Quarter: 2013Q3

REPORT INFORMATION
  Report Type: Spontaneous
  Country: ES (occurrence: ES)
  Receive Date: 20130923
  Receipt Date: 20130930
  Transmission Date: 20140515
  Serious: Yes (Hospitalization, Other)
  Sender: FDA-Public Use
  Company Number: ES-ROCHE-1278373

PATIENT
  Age: 49 Year
  Sex: Female
  Weight: 68 kg

DRUGS (5)
  1. VEMURAFENIB [Suspect]
     Indication: MALIGNANT MELANOMA
     Route: 048
     Dates: start: 20130729, end: 20130808
  2. PARACETAMOL [Concomitant]
     Indication: PAIN
     Route: 048
     Dates: start: 20120913
  3. HYOSCINE BUTYL BROMIDE [Concomitant]
     Dosage: AS REQUIRED
     Route: 048
     Dates: start: 20130807, end: 20130816
  4. OMEPRAZOL [Concomitant]
     Indication: PROPHYLAXIS
     Route: 048
     Dates: start: 20120913
  5. DOMPERIDONE [Concomitant]
     Indication: NAUSEA
     Dosage: AS REQUIRED
     Route: 048
     Dates: start: 20120914

REACTIONS (6)
  - Skin toxicity [Recovered/Resolved]
  - Hepatotoxicity [Recovered/Resolved]
  - Diarrhoea [Recovered/Resolved]
  - Mucosal inflammation [Recovered/Resolved]
  - Nausea [Recovered/Resolved]
  - Pyrexia [Recovered/Resolved]
